FAERS Safety Report 6517715-1 (Version None)
Quarter: 2009Q4

REPORT INFORMATION
  Report Type: 
  Country: None (occurrence: None)
  Receive Date: 20091224
  Receipt Date: 20091218
  Transmission Date: 20100525
  Serious: Yes (Hospitalization)
  Sender: FDA-Public Use
  Company Number: DE-BRISTOL-MYERS SQUIBB COMPANY-14903868

PATIENT
  Age: 68 Year
  Sex: Female

DRUGS (3)
  1. CETUXIMAB [Suspect]
     Indication: NON-SMALL CELL LUNG CANCER
     Dosage: CETUXIMAB 2MG/ML RECENT INF:2DEC09
     Route: 042
     Dates: start: 20090902
  2. CARBOPLATIN [Suspect]
     Indication: NON-SMALL CELL LUNG CANCER
     Dosage: 1DF=AUC4 RECENT INF:18NOV09
     Route: 042
     Dates: start: 20090902
  3. GEMCITABINE [Suspect]
     Indication: NON-SMALL CELL LUNG CANCER
     Dosage: RECENT INF:25NOV09
     Route: 042
     Dates: start: 20090902

REACTIONS (2)
  - ANAEMIA [None]
  - PNEUMONITIS [None]
